FAERS Safety Report 9738960 (Version 2)
Quarter: 2013Q4

REPORT INFORMATION
  Report Type: Spontaneous
  Country: IT (occurrence: IT)
  Receive Date: 20131209
  Receipt Date: 20131221
  Transmission Date: 20140711
  Serious: Yes (Other)
  Sender: FDA-Public Use
  Company Number: PHHY2013IT142942

PATIENT
  Age: 48 Year
  Sex: 0

DRUGS (1)
  1. ZOMETA [Suspect]
     Indication: BREAST CANCER METASTATIC
     Dosage: 4 MG, ONE VIAL EVERY 28 DAYS
     Route: 042
     Dates: start: 20070505, end: 20120506

REACTIONS (1)
  - Osteonecrosis of jaw [Not Recovered/Not Resolved]
